FAERS Safety Report 20556184 (Version 1)
Quarter: 2022Q1

REPORT INFORMATION
  Report Type: Spontaneous
  Country: US (occurrence: US)
  Receive Date: 20220304
  Receipt Date: 20220304
  Transmission Date: 20220423
  Serious: Yes (Hospitalization, Other)
  Sender: FDA-Public Use
  Company Number: US-MLMSERVICE-20220214-3374616-1

PATIENT
  Age: 28 Year
  Sex: Female

DRUGS (3)
  1. BETADINE [Suspect]
     Active Substance: POVIDONE-IODINE
     Indication: Caesarean section
     Dosage: PAINT  (STRENGTH 10%)
     Route: 061
  2. BETADINE [Suspect]
     Active Substance: POVIDONE-IODINE
     Dosage: SCRUB (STRENGTH 7.5%)
     Route: 061
  3. CHLORHEXIDINE [Concomitant]
     Active Substance: CHLORHEXIDINE
     Indication: Caesarean section
     Dosage: UNK
     Route: 065

REACTIONS (2)
  - Impaired healing [Recovered/Resolved]
  - Drug hypersensitivity [Recovered/Resolved]
